FAERS Safety Report 16163722 (Version 2)
Quarter: 2020Q2

REPORT INFORMATION
  Report Type: Spontaneous
  Country: US (occurrence: US)
  Receive Date: 20190405
  Receipt Date: 20200508
  Transmission Date: 20200713
  Serious: Yes (Other)
  Sender: FDA-Public Use
  Company Number: US-PFIZER INC-2019139497

PATIENT
  Age: 60 Year
  Sex: Female
  Weight: 92.38 kg

DRUGS (1)
  1. REVATIO [Suspect]
     Active Substance: SILDENAFIL CITRATE
     Indication: PULMONARY HYPERTENSION
     Dosage: 20 MG, 3X/DAY
     Route: 048
     Dates: start: 2008

REACTIONS (8)
  - Cough [Recovered/Resolved]
  - Sputum increased [Recovered/Resolved]
  - Hiatus hernia [Unknown]
  - Spirometry abnormal [Unknown]
  - Dyspnoea exertional [Not Recovered/Not Resolved]
  - Condition aggravated [Unknown]
  - Oesophageal disorder [Unknown]
  - Oedema peripheral [Unknown]
